FAERS Safety Report 24114572 (Version 1)
Quarter: 2024Q3

REPORT INFORMATION
  Report Type: Spontaneous
  Country: AU (occurrence: AU)
  Receive Date: 20240720
  Receipt Date: 20240720
  Transmission Date: 20241017
  Serious: Yes (Hospitalization)
  Sender: SANDOZ
  Company Number: AU-MYLANLABS-2024M1054979

PATIENT

DRUGS (2)
  1. ORPHENADRINE [Suspect]
     Active Substance: ORPHENADRINE
     Indication: Intentional overdose
     Dosage: 840 MG
     Route: 048
     Dates: start: 201601, end: 202204
  2. QUETIAPINE FUMARATE [Suspect]
     Active Substance: QUETIAPINE FUMARATE
     Indication: Product used for unknown indication
     Dosage: UNK
     Route: 048

REACTIONS (5)
  - Mydriasis [Unknown]
  - Somnolence [Unknown]
  - Tachycardia [Unknown]
  - Poisoning deliberate [Unknown]
  - Intentional overdose [Unknown]
